FAERS Safety Report 5374398-4 (Version None)
Quarter: 2007Q2

REPORT INFORMATION
  Report Type: 
  Country: None (occurrence: None)
  Receive Date: 20070629
  Receipt Date: 20070402
  Transmission Date: 20071010
  Serious: No
  Sender: FDA-Public Use
  Company Number: A0645581A

PATIENT
  Age: 22 Year
  Sex: Male

DRUGS (1)
  1. ALBUTEROL [Suspect]
     Indication: ASTHMA
     Route: 055
     Dates: start: 20070402

REACTIONS (6)
  - DIZZINESS [None]
  - DRUG ADMINISTRATION ERROR [None]
  - EXPIRED DRUG ADMINISTERED [None]
  - EYE SWELLING [None]
  - SWELLING FACE [None]
  - VISION BLURRED [None]
